FAERS Safety Report 15767970 (Version 1)
Quarter: 2018Q4

REPORT INFORMATION
  Report Type: Spontaneous
  Country: US (occurrence: US)
  Receive Date: 20181227
  Receipt Date: 20181227
  Transmission Date: 20190205
  Serious: No
  Sender: FDA-Public Use
  Company Number: US-GE HEALTHCARE LIFE SCIENCES-2018CSU003776

PATIENT

DRUGS (2)
  1. OPTISON [Suspect]
     Active Substance: ALBUMIN HUMAN
     Indication: ECHOCARDIOGRAM
     Dosage: 3 ML, SINGLE
     Route: 065
     Dates: start: 20180921, end: 20180921
  2. OPTISON [Suspect]
     Active Substance: ALBUMIN HUMAN
     Indication: PRODUCT USED FOR UNKNOWN INDICATION

REACTIONS (2)
  - No adverse event [Recovered/Resolved]
  - Drug ineffective [Recovered/Resolved]

NARRATIVE: CASE EVENT DATE: 20180921
